FAERS Safety Report 4605104-6 (Version None)
Quarter: 2005Q1

REPORT INFORMATION
  Report Type: 
  Country: None (occurrence: None)
  Receive Date: 20050214
  Receipt Date: 20050110
  Transmission Date: 20050727
  Serious: No
  Sender: FDA-Public Use
  Company Number: USA050187320

PATIENT
  Age: 64 Year
  Sex: Male

DRUGS (6)
  1. CIALIS [Suspect]
     Indication: ERECTILE DYSFUNCTION
     Dosage: 20 MG
     Dates: start: 20050101
  2. AVAPRO [Concomitant]
  3. NEURONTIN (GABAPENTIN PFIZER) [Concomitant]
  4. BACK PAIN [Concomitant]
  5. PAIN IN EXTREMITY [Concomitant]
  6. INSOMNIA [Concomitant]

REACTIONS (6)
  - BACK PAIN [None]
  - CYANOPSIA [None]
  - DIZZINESS [None]
  - HEADACHE [None]
  - INSOMNIA [None]
  - PAIN IN EXTREMITY [None]
